FAERS Safety Report 12081654 (Version 1)
Quarter: 2016Q1

REPORT INFORMATION
  Report Type: Spontaneous
  Country: US (occurrence: US)
  Receive Date: 20160216
  Receipt Date: 20160216
  Transmission Date: 20160526
  Serious: No
  Sender: FDA-Public Use
  Company Number: US-PERRIGO-15US000275

PATIENT
  Age: 59 Year
  Sex: Female
  Weight: 68.27 kg

DRUGS (3)
  1. AMOXICILLIN. [Concomitant]
     Active Substance: AMOXICILLIN
     Indication: ANTIBIOTIC THERAPY
     Dosage: UNK
     Route: 048
     Dates: start: 20150108
  2. IBUPROFEN. [Suspect]
     Active Substance: IBUPROFEN
     Indication: ORAL PAIN
     Dosage: 400 MG, SINGLE
     Route: 048
     Dates: start: 20150108, end: 20150108
  3. ANTIHYPERTENSIVES [Concomitant]
     Active Substance: UNSPECIFIED INGREDIENT
     Indication: HYPERTENSION
     Dosage: UNK
     Route: 048

REACTIONS (3)
  - Restlessness [Recovered/Resolved]
  - Drug administered to patient of inappropriate age [Recovered/Resolved]
  - Insomnia [Recovered/Resolved]

NARRATIVE: CASE EVENT DATE: 20150108
